FAERS Safety Report 9287135 (Version 2)
Quarter: 2013Q4

REPORT INFORMATION
  Report Type: Spontaneous
  Country: US (occurrence: US)
  Receive Date: 20130513
  Receipt Date: 20131003
  Transmission Date: 20140711
  Serious: Yes (Death, Other)
  Sender: FDA-Public Use
  Company Number: US-GILEAD-2013-0074787

PATIENT
  Sex: Female

DRUGS (18)
  1. CAYSTON [Suspect]
     Indication: CYSTIC FIBROSIS
     Dosage: 75 MG, UNK
     Route: 055
     Dates: start: 20100320, end: 20101201
  2. MUCINEX FAST MAX DM MAX [Concomitant]
  3. SALINE                             /00075401/ [Concomitant]
  4. MORPHINE [Concomitant]
  5. OXYCODONE [Concomitant]
     Indication: PAIN
  6. DIAZEPAM [Concomitant]
  7. QUETIAPINE [Concomitant]
  8. ALBUTEROL                          /00139501/ [Concomitant]
  9. ROPINIROLE [Concomitant]
  10. INSULIN ASPART [Concomitant]
  11. SODIUM CHLORIDE [Concomitant]
  12. ULTRASE                            /00620701/ [Concomitant]
  13. DULOXETINE [Concomitant]
  14. NECON                              /00013701/ [Concomitant]
  15. VENTOLIN                           /00139501/ [Concomitant]
  16. INSULIN GLARGINE [Concomitant]
  17. TOBRAMYCIN [Concomitant]
  18. PULMOZYME [Concomitant]

REACTIONS (1)
  - Respiratory failure [Fatal]
